FAERS Safety Report 6959729-3 (Version None)
Quarter: 2010Q3

REPORT INFORMATION
  Report Type: 
  Country: None (occurrence: None)
  Receive Date: 20100901
  Receipt Date: 20100823
  Transmission Date: 20110219
  Serious: No
  Sender: FDA-Public Use
  Company Number: US-BIOGENIDEC-2010BI018265

PATIENT
  Sex: Female

DRUGS (3)
  1. TYSABRI [Suspect]
     Indication: MULTIPLE SCLEROSIS
     Route: 042
     Dates: start: 20070123, end: 20070612
  2. TYSABRI [Suspect]
     Route: 042
     Dates: start: 20070710, end: 20100524
  3. AVONEX [Concomitant]
     Indication: MULTIPLE SCLEROSIS
     Route: 030

REACTIONS (9)
  - AMNESIA [None]
  - BALANCE DISORDER [None]
  - CARDIAC ENZYMES INCREASED [None]
  - COGNITIVE DISORDER [None]
  - DISORIENTATION [None]
  - DRUG TOLERANCE [None]
  - FATIGUE [None]
  - HEMIPARESIS [None]
  - HEPATIC ENZYME INCREASED [None]
